FAERS Safety Report 21128998 (Version 11)
Quarter: 2025Q3

REPORT INFORMATION
  Report Type: Report from Study
  Country: EG (occurrence: EG)
  Receive Date: 20220725
  Receipt Date: 20250806
  Transmission Date: 20251021
  Serious: Yes (Hospitalization, Other)
  Sender: ROCHE
  Company Number: EG-ROCHE-3145234

PATIENT
  Age: 64 Year
  Sex: Male
  Weight: 112.0 kg

DRUGS (23)
  1. ATEZOLIZUMAB [Suspect]
     Active Substance: ATEZOLIZUMAB
     Indication: Hepatocellular carcinoma
     Dosage: DOSE LAST STUDY DRUG ADMIN PRIOR AE AND 1200 MG,  ON 23/JUN/2022 WAS START AND END DATE OF MOST RECE
     Route: 042
     Dates: start: 20220206
  2. BEVACIZUMAB [Suspect]
     Active Substance: BEVACIZUMAB
     Indication: Hepatocellular carcinoma
     Route: 042
     Dates: start: 20220206
  3. CONTROLOC [Concomitant]
     Active Substance: PANTOPRAZOLE SODIUM
     Dates: start: 20220623, end: 20220623
  4. CONTROLOC [Concomitant]
     Active Substance: PANTOPRAZOLE SODIUM
     Dates: start: 20220604, end: 20220604
  5. CONTROLOC [Concomitant]
     Active Substance: PANTOPRAZOLE SODIUM
     Dates: start: 20220319, end: 20220319
  6. CONTROLOC [Concomitant]
     Active Substance: PANTOPRAZOLE SODIUM
     Dates: start: 20220206, end: 20220206
  7. CONTROLOC [Concomitant]
     Active Substance: PANTOPRAZOLE SODIUM
     Dates: start: 20220227, end: 20220227
  8. CONTROLOC [Concomitant]
     Active Substance: PANTOPRAZOLE SODIUM
     Dates: start: 20220416, end: 20220416
  9. CONTROLOC [Concomitant]
     Active Substance: PANTOPRAZOLE SODIUM
     Dates: start: 20220514, end: 20220514
  10. CONTROLOC [Concomitant]
     Active Substance: PANTOPRAZOLE SODIUM
     Dates: start: 20220716, end: 20220716
  11. BISOPROLOL FUMARATE [Concomitant]
     Active Substance: BISOPROLOL FUMARATE
  12. AMLODIPINE BESYLATE [Concomitant]
     Active Substance: AMLODIPINE BESYLATE
  13. ACTRAPID [Concomitant]
     Active Substance: INSULIN HUMAN
  14. ALFACALCIDOL [Concomitant]
     Active Substance: ALFACALCIDOL
  15. URSODIOL [Concomitant]
     Active Substance: URSODIOL
  16. DIETARY SUPPLEMENT\HERBALS\MILK THISTLE [Concomitant]
     Active Substance: MILK THISTLE
     Dates: start: 20220705, end: 20220708
  17. URSOPLUS [Concomitant]
     Route: 065
     Dates: start: 20230402, end: 20230404
  18. ATROPINE [Concomitant]
     Active Substance: ATROPINE
     Route: 065
     Dates: start: 20230402, end: 20230404
  19. EPINEPHRINE [Concomitant]
     Active Substance: EPINEPHRINE
     Dates: start: 20220402, end: 20220403
  20. ALBUMIN HUMAN [Concomitant]
     Active Substance: ALBUMIN HUMAN
     Dates: start: 20220227, end: 20220227
  21. KONAKION [Concomitant]
     Active Substance: PHYTONADIONE
     Dates: start: 20220403, end: 20220403
  22. LASIX [Concomitant]
     Active Substance: FUROSEMIDE
     Dates: start: 20220801, end: 20220809
  23. SPIRONOLACTONE [Concomitant]
     Active Substance: SPIRONOLACTONE
     Dates: start: 20220801, end: 20220809

REACTIONS (2)
  - Hepatic encephalopathy [Recovered/Resolved]
  - Hypokalaemia [Recovered/Resolved]

NARRATIVE: CASE EVENT DATE: 20220623
